FAERS Safety Report 7975431-3 (Version None)
Quarter: 2011Q4

REPORT INFORMATION
  Report Type: 
  Country: None (occurrence: None)
  Receive Date: 20111213
  Receipt Date: 20110928
  Transmission Date: 20120403
  Serious: No
  Sender: FDA-Public Use
  Company Number: US-AMGEN-USASP2011050045

PATIENT
  Age: 82 Year
  Sex: Female

DRUGS (5)
  1. MOBIC [Concomitant]
     Dosage: UNK
  2. MUCINEX D [Concomitant]
     Dosage: UNK
     Dates: start: 20090901
  3. PLAQUENIL [Concomitant]
     Dosage: UNK
  4. ENBREL [Suspect]
     Indication: RHEUMATOID ARTHRITIS
     Dosage: 25 MG, 2 TIMES/WK
     Dates: start: 20090101
  5. METHOTREXATE [Concomitant]
     Dosage: UNK

REACTIONS (2)
  - NASOPHARYNGITIS [None]
  - PRURITUS [None]
